FAERS Safety Report 7690658-6 (Version None)
Quarter: 2011Q3

REPORT INFORMATION
  Report Type: 
  Country: None (occurrence: None)
  Receive Date: 20110812
  Receipt Date: 20110809
  Transmission Date: 20111222
  Serious: Yes (Other)
  Sender: FDA-Public Use
  Company Number: 20119877

PATIENT
  Age: 13 Year
  Sex: Male

DRUGS (1)
  1. LIORESAL [Suspect]
     Indication: MUSCLE SPASTICITY
     Dosage: DAILY, INTRATHECAL
     Route: 037

REACTIONS (9)
  - PROTRUSION TONGUE [None]
  - DYSTONIA [None]
  - DRUG WITHDRAWAL SYNDROME [None]
  - MOVEMENT DISORDER [None]
  - COMPULSIVE LIP BITING [None]
  - MUSCULOSKELETAL STIFFNESS [None]
  - AGITATION [None]
  - SPINAL CORD INFECTION [None]
  - MEDICAL DEVICE COMPLICATION [None]
